FAERS Safety Report 26145116 (Version 1)
Quarter: 2025Q4

REPORT INFORMATION
  Report Type: Spontaneous
  Country: EU (occurrence: EU)
  Receive Date: 20251211
  Receipt Date: 20251211
  Transmission Date: 20260117
  Serious: Yes (Other)
  Sender: SUNOVION
  Company Number: EU-RICHTER-2025-GR-015859

PATIENT
  Age: 48 Year
  Sex: Female
  Weight: 70 kg

DRUGS (2)
  1. ESTRADIOL\NORETHINDRONE ACETATE\RELUGOLIX [Suspect]
     Active Substance: ESTRADIOL\NORETHINDRONE ACETATE\RELUGOLIX
     Indication: Endometriosis
     Dosage: 1 TABLET PER DAY
  2. ESTRADIOL\NORETHINDRONE ACETATE\RELUGOLIX [Suspect]
     Active Substance: ESTRADIOL\NORETHINDRONE ACETATE\RELUGOLIX
     Indication: Uterine leiomyoma

REACTIONS (2)
  - Pain [Not Recovered/Not Resolved]
  - Uterine haemorrhage [Not Recovered/Not Resolved]

NARRATIVE: CASE EVENT DATE: 20250820
